FAERS Safety Report 11282086 (Version 5)
Quarter: 2015Q4

REPORT INFORMATION
  Report Type: Spontaneous
  Country: US (occurrence: US)
  Receive Date: 20150719
  Receipt Date: 20151002
  Transmission Date: 20160304
  Serious: Yes (Death, Hospitalization, Other)
  Sender: FDA-Public Use
  Company Number: US-ABBVIE-15P-163-1428924-00

PATIENT
  Age: 57 Year
  Sex: Male
  Weight: 73.55 kg

DRUGS (10)
  1. VIEKIRA PAK [Suspect]
     Active Substance: DASABUVIR\OMBITASVIR\PARITAPREVIR\RITONAVIR
     Indication: HEPATITIS C
  2. SYMBICORT [Concomitant]
     Active Substance: BUDESONIDE\FORMOTEROL FUMARATE DIHYDRATE
     Indication: PRODUCT USED FOR UNKNOWN INDICATION
  3. MODERIBA [Suspect]
     Active Substance: RIBAVIRIN
     Indication: HEPATIC CIRRHOSIS
     Dosage: 3 TABS IN AM, 2 TABS IN PM
     Route: 048
     Dates: start: 20150629, end: 20150713
  4. PHENERGAN [Concomitant]
     Active Substance: PROMETHAZINE HYDROCHLORIDE
     Indication: PRODUCT USED FOR UNKNOWN INDICATION
  5. MODERIBA [Suspect]
     Active Substance: RIBAVIRIN
     Indication: HEPATITIS C
  6. PRILOSEC [Concomitant]
     Active Substance: OMEPRAZOLE MAGNESIUM
     Indication: GASTROOESOPHAGEAL REFLUX DISEASE
  7. METHADONE [Concomitant]
     Active Substance: METHADONE HYDROCHLORIDE
     Indication: PRODUCT USED FOR UNKNOWN INDICATION
  8. AMBIEN [Concomitant]
     Active Substance: ZOLPIDEM TARTRATE
     Indication: INSOMNIA
     Dosage: AT HS
     Route: 048
  9. NORVASC [Concomitant]
     Active Substance: AMLODIPINE BESYLATE
     Indication: HYPERTENSION
     Route: 048
  10. VIEKIRA PAK [Suspect]
     Active Substance: DASABUVIR\OMBITASVIR\PARITAPREVIR\RITONAVIR
     Indication: HEPATIC CIRRHOSIS
     Dosage: ONE PACK DAILY IN DIVIDED DOSES, 12.5, 75, 50MG
     Route: 048
     Dates: start: 20150629, end: 20150713

REACTIONS (9)
  - Blood bilirubin increased [Not Recovered/Not Resolved]
  - Respiratory failure [Fatal]
  - Blood albumin decreased [Not Recovered/Not Resolved]
  - Liver palpable [Not Recovered/Not Resolved]
  - Multi-organ failure [Fatal]
  - Renal failure [Fatal]
  - Jaundice [Not Recovered/Not Resolved]
  - Pneumonia [Not Recovered/Not Resolved]
  - Hepatic failure [Fatal]

NARRATIVE: CASE EVENT DATE: 201507
